FAERS Safety Report 16950346 (Version 1)
Quarter: 2019Q4

REPORT INFORMATION
  Report Type: Spontaneous
  Country: US (occurrence: US)
  Receive Date: 20190903
  Receipt Date: 20190903
  Transmission Date: 20200122
  Serious: Yes (Hospitalization)
  Sender: FDA-Public Use
  Company Number: None

PATIENT
  Age: 74 Year
  Sex: Female
  Weight: 68 kg

DRUGS (1)
  1. DECITABINE (5-AZA-2^-DEOXYCYTIDINE) [Suspect]
     Active Substance: DECITABINE
     Dates: end: 20190804

REACTIONS (6)
  - Epistaxis [None]
  - Thrombocytopenia [None]
  - Rectal haemorrhage [None]
  - Haemorrhoids [None]
  - Pancytopenia [None]
  - Secretion discharge [None]

NARRATIVE: CASE EVENT DATE: 20190810
